FAERS Safety Report 19680657 (Version 2)
Quarter: 2021Q3

REPORT INFORMATION
  Report Type: Spontaneous
  Country: AT (occurrence: AT)
  Receive Date: 20210810
  Receipt Date: 20210902
  Transmission Date: 20211014
  Serious: Yes (Hospitalization, Other)
  Sender: FDA-Public Use
  Company Number: AT-AMGEN-AUTSP2021119473

PATIENT

DRUGS (5)
  1. CLINDAMYCIN. [Concomitant]
     Active Substance: CLINDAMYCIN
  2. PROLIA [Suspect]
     Active Substance: DENOSUMAB
     Indication: OSTEOPOROSIS
     Dosage: 60 MILLIGRAM, Q6MO
     Route: 065
  3. XGEVA [Suspect]
     Active Substance: DENOSUMAB
     Indication: NEOPLASM
     Dosage: 120 MILLIGRAM, Q4WK
     Route: 065
  4. AMPICILLIN [Concomitant]
     Active Substance: AMPICILLIN
  5. SULBACTAM [Concomitant]
     Active Substance: SULBACTAM

REACTIONS (10)
  - Vitamin D deficiency [Unknown]
  - Prealbumin decreased [Not Recovered/Not Resolved]
  - Serum ferritin increased [Unknown]
  - Protein total decreased [Unknown]
  - Blood albumin decreased [Not Recovered/Not Resolved]
  - Vitamin B12 deficiency [Unknown]
  - Osteonecrosis of jaw [Unknown]
  - Wound dehiscence [Unknown]
  - Folate deficiency [Unknown]
  - Transferrin decreased [Not Recovered/Not Resolved]
